FAERS Safety Report 15213781 (Version 1)
Quarter: 2018Q3

REPORT INFORMATION
  Report Type: Spontaneous
  Country: US (occurrence: US)
  Receive Date: 20180730
  Receipt Date: 20180730
  Transmission Date: 20181010
  Serious: No
  Sender: FDA-Public Use
  Company Number: US-VERTEX PHARMACEUTICALS-2018-005179

PATIENT
  Sex: Female

DRUGS (1)
  1. KALYDECO [Suspect]
     Active Substance: IVACAFTOR
     Indication: CYSTIC FIBROSIS
     Dosage: 150 MG (FREQUENCY UNSPECIFIED)
     Route: 048

REACTIONS (7)
  - Joint stiffness [Unknown]
  - Arthralgia [Unknown]
  - Neuralgia [Unknown]
  - Asthenia [Unknown]
  - Paraesthesia [Unknown]
  - Pain in extremity [Unknown]
  - Hypoaesthesia [Unknown]
